FAERS Safety Report 6081300-9 (Version None)
Quarter: 2009Q1

REPORT INFORMATION
  Report Type: 
  Country: None (occurrence: None)
  Receive Date: 20090211
  Receipt Date: 20090113
  Transmission Date: 20090719
  Serious: Yes (Other)
  Sender: FDA-Public Use
  Company Number: AEUSA200900010

PATIENT
  Age: 54 Year
  Sex: Female
  Weight: 66.2252 kg

DRUGS (8)
  1. GAMUNEX [Suspect]
     Indication: HYPOGAMMAGLOBULINAEMIA
     Dosage: 35 GM; Q3W; IV
     Route: 042
  2. GAMUNEX [Suspect]
     Indication: SELECTIVE IGA IMMUNODEFICIENCY
     Dosage: 35 GM; Q3W; IV
     Route: 042
  3. BENADRYL [Concomitant]
  4. XANAX [Concomitant]
  5. NOVOLIN R [Concomitant]
  6. GLUCOTROL XL [Concomitant]
  7. LEVOTHYROXINE SODIUM [Concomitant]
  8. NEXIUM [Concomitant]

REACTIONS (1)
  - UPPER RESPIRATORY TRACT INFECTION [None]
